FAERS Safety Report 19548685 (Version 1)
Quarter: 2021Q3

REPORT INFORMATION
  Report Type: Spontaneous
  Country: US (occurrence: US)
  Receive Date: 20210715
  Receipt Date: 20210715
  Transmission Date: 20211014
  Serious: Yes (Other)
  Sender: FDA-Public Use
  Company Number: None

PATIENT
  Age: 70 Year
  Sex: Female
  Weight: 58.97 kg

DRUGS (8)
  1. REPATHA [Suspect]
     Active Substance: EVOLOCUMAB
     Indication: BLOOD CHOLESTEROL
     Dosage: QUANTITY:1 DF DOSAGE FORM;?
     Route: 058
     Dates: start: 200103, end: 20010601
  2. LUNESTA [Concomitant]
     Active Substance: ESZOPICLONE
  3. OXYGEN. [Concomitant]
     Active Substance: OXYGEN
  4. TUMERIC [Concomitant]
     Active Substance: HERBALS\TURMERIC
  5. D3 ? CALCIUM [Concomitant]
  6. MILK THISTLE [Concomitant]
     Active Substance: DIETARY SUPPLEMENT\HERBALS\MILK THISTLE
  7. VITAMIN B12 [Concomitant]
     Active Substance: CYANOCOBALAMIN
  8. EZTIMBE [Concomitant]

REACTIONS (1)
  - Alopecia [None]
